FAERS Safety Report 6401594-7 (Version None)
Quarter: 2009Q4

REPORT INFORMATION
  Report Type: 
  Country: None (occurrence: None)
  Receive Date: 20091015
  Receipt Date: 20091007
  Transmission Date: 20100525
  Serious: Yes (Hospitalization)
  Sender: FDA-Public Use
  Company Number: AU-JNJFOC-20090600041

PATIENT
  Age: 85 Year
  Sex: Male

DRUGS (2)
  1. RAZADYNE ER [Suspect]
     Route: 065
  2. RAZADYNE ER [Suspect]
     Indication: DRUG USE FOR UNKNOWN INDICATION
     Route: 065

REACTIONS (16)
  - ABNORMAL BEHAVIOUR [None]
  - AGITATION [None]
  - ARRHYTHMIA [None]
  - CHOLINERGIC SYNDROME [None]
  - COGNITIVE DISORDER [None]
  - DELIRIUM [None]
  - DEMENTIA [None]
  - DIZZINESS [None]
  - ELECTROCARDIOGRAM QT PROLONGED [None]
  - FALL [None]
  - HYPOTENSION [None]
  - LACERATION [None]
  - LOSS OF CONSCIOUSNESS [None]
  - SYNCOPE [None]
  - URINARY INCONTINENCE [None]
  - VENTRICULAR EXTRASYSTOLES [None]
